FAERS Safety Report 5824992-9 (Version None)
Quarter: 2008Q3

REPORT INFORMATION
  Report Type: 
  Country: None (occurrence: None)
  Receive Date: 20080728
  Receipt Date: 20080716
  Transmission Date: 20090109
  Serious: Yes (Other)
  Sender: FDA-Public Use
  Company Number: US-PFIZER INC-2008060304

PATIENT
  Sex: Male

DRUGS (1)
  1. LYRICA [Suspect]

REACTIONS (3)
  - CEREBROVASCULAR ACCIDENT [None]
  - DRUG WITHDRAWAL SYNDROME [None]
  - UNRESPONSIVE TO STIMULI [None]
